FAERS Safety Report 12194902 (Version 1)
Quarter: 2016Q1

REPORT INFORMATION
  Report Type: Spontaneous
  Country: US (occurrence: US)
  Receive Date: 20160321
  Receipt Date: 20160321
  Transmission Date: 20160526
  Serious: No
  Sender: FDA-Public Use
  Company Number: US-GLAXOSMITHKLINE-US2016035127

PATIENT
  Age: 60 Year
  Sex: Female

DRUGS (5)
  1. ETHAMBUTOL HYDROCHLORIDE. [Concomitant]
     Active Substance: ETHAMBUTOL HYDROCHLORIDE
  2. MOXIFLOXACIN. [Concomitant]
     Active Substance: MOXIFLOXACIN
  3. RIFAMPIN. [Concomitant]
     Active Substance: RIFAMPIN
  4. ANORO ELLIPTA [Suspect]
     Active Substance: UMECLIDINIUM BROMIDE\VILANTEROL TRIFENATATE
     Indication: CHRONIC OBSTRUCTIVE PULMONARY DISEASE
     Dosage: 1 PUFF(S), 1D
     Route: 055
     Dates: start: 20160308
  5. AMIKACIN [Concomitant]
     Active Substance: AMIKACIN

REACTIONS (2)
  - Dizziness [Not Recovered/Not Resolved]
  - Hypotension [Unknown]

NARRATIVE: CASE EVENT DATE: 20160310
